FAERS Safety Report 18986351 (Version 1)
Quarter: 2021Q1

REPORT INFORMATION
  Report Type: Spontaneous
  Country: US (occurrence: US)
  Receive Date: 20210308
  Receipt Date: 20210308
  Transmission Date: 20210420
  Serious: Yes (Hospitalization)
  Sender: FDA-Public Use
  Company Number: None

PATIENT
  Age: 82 Year
  Sex: Male
  Weight: 75.15 kg

DRUGS (17)
  1. PREDNISONE. [Concomitant]
     Active Substance: PREDNISONE
  2. ASPIRIN. [Concomitant]
     Active Substance: ASPIRIN
  3. BENZONATATE. [Concomitant]
     Active Substance: BENZONATATE
  4. HYDROCORTISONE. [Concomitant]
     Active Substance: HYDROCORTISONE
  5. HYDROMORPHONE [Concomitant]
     Active Substance: HYDROMORPHONE
  6. NORCO [Concomitant]
     Active Substance: ACETAMINOPHEN\HYDROCODONE BITARTRATE
  7. ONDANSETRON [Concomitant]
     Active Substance: ONDANSETRON
  8. TAMSULOSIN [Concomitant]
     Active Substance: TAMSULOSIN
  9. ATORVASTATIN [Concomitant]
     Active Substance: ATORVASTATIN
  10. DOCUSATE SODIUM. [Concomitant]
     Active Substance: DOCUSATE SODIUM
  11. ESOCONAZOLE NITRATE [Concomitant]
  12. CLOBETASOL PROPRIONATE [Concomitant]
     Active Substance: CLOBETASOL PROPIONATE
  13. NIFEDIPINE. [Concomitant]
     Active Substance: NIFEDIPINE
  14. TRIAMTERENE?HCTZ [Concomitant]
     Active Substance: HYDROCHLOROTHIAZIDE\TRIAMTERENE
  15. ABIRATERONE. [Suspect]
     Active Substance: ABIRATERONE ACETATE
     Indication: PROSTATE CANCER
     Route: 048
     Dates: start: 20201105
  16. DILAUDID [Concomitant]
     Active Substance: HYDROMORPHONE HYDROCHLORIDE
  17. ZYTIGA [Concomitant]
     Active Substance: ABIRATERONE ACETATE

REACTIONS (1)
  - Dysphagia [None]

NARRATIVE: CASE EVENT DATE: 20210305
